FAERS Safety Report 18964116 (Version 3)
Quarter: 2021Q1

REPORT INFORMATION
  Report Type: Spontaneous
  Country: US (occurrence: US)
  Receive Date: 20210303
  Receipt Date: 20210309
  Transmission Date: 20210420
  Serious: Yes (Hospitalization)
  Sender: FDA-Public Use
  Company Number: US-PFIZER INC-2018262599

PATIENT
  Age: 56 Year
  Sex: Male

DRUGS (2)
  1. LYRICA [Suspect]
     Active Substance: PREGABALIN
     Indication: BACK PAIN
     Dosage: 300 MG, 2X/DAY (AS DIRECTED FOR 90 DAYS)
     Route: 048
     Dates: start: 20200502
  2. LYRICA [Suspect]
     Active Substance: PREGABALIN
     Indication: PAIN
     Dosage: 75 MG, 2X/DAY (1 CAPSULE TWO TIMES DAILY FOR 90 DAYS; DISP: 180 CAPSULES)
     Route: 048

REACTIONS (2)
  - Gallbladder disorder [Unknown]
  - Feeling abnormal [Unknown]
